FAERS Safety Report 6312091-1 (Version None)
Quarter: 2009Q3

REPORT INFORMATION
  Report Type: 
  Country: None (occurrence: None)
  Receive Date: 20090813
  Receipt Date: 20090813
  Transmission Date: 20100115
  Serious: No
  Sender: FDA-Public Use
  Company Number: None

PATIENT
  Age: 40 Year
  Sex: Male
  Weight: 117.9352 kg

DRUGS (2)
  1. ZICAM NO-DRIP LIQUID NASAL GEL 1 SWAB HOMEOPATHIC [Suspect]
     Indication: HYPERSENSITIVITY
     Dosage: 1 SWAB 2-3 TIMES PER DAY NASAL
     Route: 045
     Dates: start: 20080501, end: 20080515
  2. ZICAM NO-DRIP LIQUID NASAL GEL 1 SWAB HOMEOPATHIC [Suspect]
     Indication: NASOPHARYNGITIS
     Dosage: 1 SWAB 2-3 TIMES PER DAY NASAL
     Route: 045
     Dates: start: 20080501, end: 20080515

REACTIONS (1)
  - HYPOSMIA [None]
